FAERS Safety Report 4802465-X (Version None)
Quarter: 2005Q4

REPORT INFORMATION
  Report Type: 
  Country: None (occurrence: None)
  Receive Date: 20051011
  Receipt Date: 20050928
  Transmission Date: 20060501
  Serious: Yes (Death)
  Sender: FDA-Public Use
  Company Number: 2005136861

PATIENT
  Age: 25 Year
  Sex: Male

DRUGS (2)
  1. GEODON [Suspect]
     Indication: ILL-DEFINED DISORDER
  2. ANTIPSYCHOTICS (ANTIPSYCHOTICS) [Concomitant]

REACTIONS (4)
  - COMPLETED SUICIDE [None]
  - MANIA [None]
  - THINKING ABNORMAL [None]
  - WEIGHT ABNORMAL [None]
